FAERS Safety Report 7102920-6 (Version None)
Quarter: 2010Q4

REPORT INFORMATION
  Report Type: 
  Country: None (occurrence: None)
  Receive Date: 20101108
  Receipt Date: 20101012
  Transmission Date: 20110411
  Serious: Yes (Other)
  Sender: FDA-Public Use
  Company Number: FR-021340

PATIENT
  Age: 50 Year
  Sex: Male

DRUGS (5)
  1. MELPHALAN HYDROCHLORIDE [Suspect]
     Indication: CHEMOTHERAPY
     Dosage: 250 MG (250 MG,1 IN 1 D) INJECTION
     Route: 042
     Dates: start: 20100810, end: 20100810
  2. CYCLOPHOSPHAMIDE [Suspect]
     Indication: CHEMOTHERAPY
     Dosage: 4600 MG (4600 MG,1 IN 1 D)
     Dates: start: 20090807, end: 20090808
  3. ETOPOSIDE [Suspect]
     Indication: CHEMOTHERAPY
     Dosage: 600 MG (600 MG,1 IN 1 D)
     Dates: start: 20090807, end: 20090809
  4. DEXAMETHASONE [Concomitant]
  5. RITUXIMAB (UNKNOWN) [Concomitant]

REACTIONS (11)
  - DECREASED APPETITE [None]
  - DIARRHOEA [None]
  - FEELING ABNORMAL [None]
  - GASTROINTESTINAL MUCOSAL DISORDER [None]
  - HAEMORRHAGE [None]
  - MALAISE [None]
  - NAUSEA [None]
  - NEUTROPHIL COUNT DECREASED [None]
  - ORAL PAIN [None]
  - RENAL IMPAIRMENT [None]
  - STOMATITIS [None]
